FAERS Safety Report 13553077 (Version 1)
Quarter: 2017Q2

REPORT INFORMATION
  Report Type: Spontaneous
  Country: US (occurrence: US)
  Receive Date: 20170516
  Receipt Date: 20170516
  Transmission Date: 20170830
  Serious: Yes (Other)
  Sender: FDA-Public Use
  Company Number: None

PATIENT
  Age: 52 Year
  Sex: Female
  Weight: 90 kg

DRUGS (1)
  1. BOTOX [Suspect]
     Active Substance: ONABOTULINUMTOXINA
     Indication: MIGRAINE
     Route: 058
     Dates: start: 20161209, end: 20161209

REACTIONS (5)
  - Hypoacusis [None]
  - Pain [None]
  - Headache [None]
  - Cerebral congestion [None]
  - Discomfort [None]

NARRATIVE: CASE EVENT DATE: 20161209
